FAERS Safety Report 21060838 (Version 1)
Quarter: 2022Q3

REPORT INFORMATION
  Report Type: Spontaneous
  Country: JP (occurrence: JP)
  Receive Date: 20220709
  Receipt Date: 20220709
  Transmission Date: 20221027
  Serious: Yes (Other)
  Sender: FDA-Public Use
  Company Number: JP-JNJFOC-20220707286

PATIENT
  Age: 74 Year
  Sex: Female

DRUGS (10)
  1. UPTRAVI [Suspect]
     Active Substance: SELEXIPAG
     Indication: Pulmonary arterial hypertension
     Route: 048
     Dates: start: 201909, end: 2019
  2. UPTRAVI [Suspect]
     Active Substance: SELEXIPAG
     Route: 048
     Dates: start: 2019
  3. UPTRAVI [Suspect]
     Active Substance: SELEXIPAG
     Route: 048
  4. UPTRAVI [Suspect]
     Active Substance: SELEXIPAG
     Route: 048
  5. ADEMPAS [Concomitant]
     Active Substance: RIOCIGUAT
     Indication: Pulmonary arterial hypertension
     Dates: start: 201909, end: 201909
  6. ADEMPAS [Concomitant]
     Active Substance: RIOCIGUAT
     Dates: start: 201909, end: 201909
  7. ADEMPAS [Concomitant]
     Active Substance: RIOCIGUAT
     Dates: start: 2019
  8. ADEMPAS [Concomitant]
     Active Substance: RIOCIGUAT
  9. OPSUMIT [Concomitant]
     Active Substance: MACITENTAN
     Indication: Pulmonary arterial hypertension
  10. UNSPECIFIED INGREDIENT [Concomitant]
     Active Substance: UNSPECIFIED INGREDIENT

REACTIONS (2)
  - Tricuspid valve incompetence [Recovered/Resolved]
  - Transvalvular pressure gradient [Recovered/Resolved]
